FAERS Safety Report 23920724 (Version 1)
Quarter: 2024Q2

REPORT INFORMATION
  Report Type: Spontaneous
  Country: US (occurrence: US)
  Receive Date: 20240530
  Receipt Date: 20240530
  Transmission Date: 20240715
  Serious: No
  Sender: FDA-Public Use
  Company Number: US-MYLANLABS-2024M1039789

PATIENT

DRUGS (1)
  1. ESTRADIOL TRANSDERMAL SYSTEM [Suspect]
     Active Substance: ESTRADIOL
     Indication: Product used for unknown indication
     Dosage: 0.025 MILLIGRAM, QD (ONCE PER DAY, TWICE WEEKLY)
     Route: 062
     Dates: start: 2018

REACTIONS (4)
  - Mood altered [Unknown]
  - Migraine [Unknown]
  - Drug level changed [Unknown]
  - Product substitution issue [Unknown]
